FAERS Safety Report 4498764-4 (Version None)
Quarter: 2004Q3

REPORT INFORMATION
  Report Type: 
  Country: None (occurrence: None)
  Receive Date: 20040927
  Receipt Date: 20040715
  Transmission Date: 20050211
  Serious: No
  Sender: FDA-Public Use
  Company Number: USA040670344

PATIENT
  Age: 12 Year
  Sex: Female
  Weight: 60 kg

DRUGS (2)
  1. STRATTERA [Suspect]
     Indication: ATTENTION DEFICIT/HYPERACTIVITY DISORDER
     Dosage: 40 MG DAY
     Dates: start: 20040615, end: 20040616
  2. SUDAFED 12 HOUR [Concomitant]

REACTIONS (3)
  - DRUG INTERACTION [None]
  - MICTURITION URGENCY [None]
  - URINARY RETENTION [None]
